FAERS Safety Report 12655607 (Version 1)
Quarter: 2016Q3

REPORT INFORMATION
  Report Type: Spontaneous
  Country: BR (occurrence: BR)
  Receive Date: 20160816
  Receipt Date: 20160816
  Transmission Date: 20161109
  Serious: Yes (Other)
  Sender: FDA-Public Use
  Company Number: PHHY2016BR110266

PATIENT
  Sex: Male

DRUGS (1)
  1. DOXURAN [Suspect]
     Active Substance: DOXAZOSIN MESYLATE
     Indication: BENIGN PROSTATIC HYPERPLASIA
     Dosage: 2 MG, QD
     Route: 048
     Dates: start: 2013

REACTIONS (4)
  - Malaise [Unknown]
  - Cataract [Unknown]
  - Dysuria [Unknown]
  - Proctalgia [Unknown]
